FAERS Safety Report 5853594-3 (Version None)
Quarter: 2008Q3

REPORT INFORMATION
  Report Type: 
  Country: None (occurrence: None)
  Receive Date: 20080822
  Receipt Date: 20080812
  Transmission Date: 20090109
  Serious: Yes (Hospitalization)
  Sender: FDA-Public Use
  Company Number: ES-JNJFOC-20080802748

PATIENT
  Age: 70 Year
  Sex: Female

DRUGS (3)
  1. REMICADE [Suspect]
     Indication: CROHN'S DISEASE
     Dosage: TOTAL # INFUSIONS: 1
     Route: 042
  2. DACORTIN [Concomitant]
     Indication: CROHN'S DISEASE
     Route: 048
  3. MERCAPTOPURINA GSK [Concomitant]
     Indication: CROHN'S DISEASE
     Route: 048

REACTIONS (1)
  - LISTERIA SEPSIS [None]
